FAERS Safety Report 7557437-1 (Version None)
Quarter: 2011Q2

REPORT INFORMATION
  Report Type: 
  Country: None (occurrence: None)
  Receive Date: 20110620
  Receipt Date: 20110607
  Transmission Date: 20111010
  Serious: Yes (Hospitalization)
  Sender: FDA-Public Use
  Company Number: US-ROCHE-783065

PATIENT
  Sex: Female

DRUGS (3)
  1. CARBOPLATIN [Suspect]
     Dosage: AUC 6 IP ON DAY 1
     Route: 065
     Dates: start: 20100409
  2. PACLITAXEL [Suspect]
     Dosage: OVER 1 HOUR ON DAY 1, 8 AND 15
     Route: 042
     Dates: start: 20100409
  3. BEVACIZUMAB [Suspect]
     Dosage: OVER 30-90 MINUTES ON DAY 1 BEGINNING WITH CYCLE 2, LAST DOSE 23 AUG 2010 (CYCLE =1-6)
     Route: 042
     Dates: start: 20100409

REACTIONS (3)
  - NAUSEA [None]
  - VOMITING [None]
  - SMALL INTESTINAL OBSTRUCTION [None]
